FAERS Safety Report 17161941 (Version 1)
Quarter: 2019Q4

REPORT INFORMATION
  Report Type: Spontaneous
  Country: FR (occurrence: FR)
  Receive Date: 20191217
  Receipt Date: 20191217
  Transmission Date: 20200122
  Serious: Yes (Life-Threatening, Hospitalization)
  Sender: FDA-Public Use
  Company Number: FR-ROCHE-2493395

PATIENT
  Age: 66 Year
  Sex: Male

DRUGS (3)
  1. VALIUM [Suspect]
     Active Substance: DIAZEPAM
     Indication: PRODUCT USED FOR UNKNOWN INDICATION
     Dosage: A PRIS 4 COMPRIMES
     Route: 048
     Dates: start: 20190928, end: 20190928
  2. HEROIN [Suspect]
     Active Substance: DIAMORPHINE
     Indication: PRODUCT USED FOR UNKNOWN INDICATION
     Route: 045
     Dates: start: 20190928, end: 20190928
  3. METHADONE AP HP [Concomitant]
     Active Substance: METHADONE HYDROCHLORIDE
     Route: 048

REACTIONS (3)
  - Bradypnoea [Recovered/Resolved]
  - Drug abuse [Unknown]
  - Coma [Recovered/Resolved]

NARRATIVE: CASE EVENT DATE: 20190928
